FAERS Safety Report 16059896 (Version 2)
Quarter: 2019Q2

REPORT INFORMATION
  Report Type: Spontaneous
  Country: US (occurrence: US)
  Receive Date: 20190311
  Receipt Date: 20190402
  Transmission Date: 20190711
  Serious: No
  Sender: FDA-Public Use
  Company Number: US-LUPIN PHARMACEUTICALS INC.-2018-09198

PATIENT
  Age: 16 Year
  Sex: Male

DRUGS (10)
  1. SERTRALINE [Suspect]
     Active Substance: SERTRALINE HYDROCHLORIDE
     Dosage: 75 MG, QD
     Route: 065
  2. LITHIUM. [Suspect]
     Active Substance: LITHIUM
     Indication: AFFECTIVE DISORDER
     Dosage: 600 MILLIGRAM, BID
     Route: 065
  3. RISPERIDONE. [Suspect]
     Active Substance: RISPERIDONE
     Indication: PSYCHIATRIC DECOMPENSATION
     Dosage: 0.5 MILLIGRAM, BID
     Route: 065
  4. RISPERIDONE. [Suspect]
     Active Substance: RISPERIDONE
     Dosage: 0.25 MILLIGRAM, BID
     Route: 065
  5. TESTOSTERONE. [Concomitant]
     Active Substance: TESTOSTERONE
     Indication: PRADER-WILLI SYNDROME
     Dosage: 200 MG, EVERY OTHER WEEK
     Route: 030
  6. SERTRALINE [Suspect]
     Active Substance: SERTRALINE HYDROCHLORIDE
     Dosage: 75 MG, UNK
     Route: 065
  7. SOMATROPIN. [Concomitant]
     Active Substance: SOMATROPIN
     Indication: PRADER-WILLI SYNDROME
     Dosage: 5 MG, AT NIGHT
     Route: 058
  8. SOMATROPIN. [Concomitant]
     Active Substance: SOMATROPIN
     Dosage: 0.5 MILLIGRAM, QD AT NIGHT
     Route: 058
  9. SERTRALINE [Suspect]
     Active Substance: SERTRALINE HYDROCHLORIDE
     Indication: PSYCHIATRIC DECOMPENSATION
     Dosage: 150 MG, GRADUALLY TITRATED
     Route: 065
  10. ARIPIPRAZOLE. [Suspect]
     Active Substance: ARIPIPRAZOLE
     Indication: INTENTIONAL SELF-INJURY
     Dosage: 2 MILLIGRAM
     Route: 065

REACTIONS (10)
  - Dizziness [Unknown]
  - Increased appetite [Recovering/Resolving]
  - Abnormal behaviour [Unknown]
  - Agitation [Unknown]
  - Psychomotor hyperactivity [Unknown]
  - Weight increased [Unknown]
  - Anxiety [Unknown]
  - Affective disorder [Recovering/Resolving]
  - Nausea [Unknown]
  - Theft [Unknown]
